FAERS Safety Report 17872220 (Version 3)
Quarter: 2020Q3

REPORT INFORMATION
  Report Type: Spontaneous
  Country: DE (occurrence: DE)
  Receive Date: 20200608
  Receipt Date: 20200731
  Transmission Date: 20201103
  Serious: Yes (Disabling)
  Sender: FDA-Public Use
  Company Number: DE-ELI_LILLY_AND_COMPANY-DE202004012087

PATIENT
  Age: 63 Year
  Sex: Female
  Weight: 100 kg

DRUGS (10)
  1. ZYPREXA [Suspect]
     Active Substance: OLANZAPINE
     Indication: SCHIZOPHRENIA
     Dosage: UNK, UNKNOWN
     Route: 065
     Dates: start: 2009, end: 202003
  2. LANTUS [Concomitant]
     Active Substance: INSULIN GLARGINE
     Indication: PRODUCT USED FOR UNKNOWN INDICATION
  3. ZYPREXA [Suspect]
     Active Substance: OLANZAPINE
     Indication: DEPRESSION
  4. SIMVASTATIN. [Concomitant]
     Active Substance: SIMVASTATIN
     Indication: PRODUCT USED FOR UNKNOWN INDICATION
  5. TRULICITY [Concomitant]
     Active Substance: DULAGLUTIDE
     Indication: PRODUCT USED FOR UNKNOWN INDICATION
  6. TRIMIPRAMINE [Concomitant]
     Active Substance: TRIMIPRAMINE
     Indication: PRODUCT USED FOR UNKNOWN INDICATION
  7. JARDIANCE [Concomitant]
     Active Substance: EMPAGLIFLOZIN
     Dosage: UNK, UNKNOWN
     Route: 065
     Dates: end: 202003
  8. ACTRAPID [Concomitant]
     Active Substance: INSULIN HUMAN
     Indication: PRODUCT USED FOR UNKNOWN INDICATION
  9. METFORMIN [Concomitant]
     Active Substance: METFORMIN HYDROCHLORIDE
     Dosage: UNK, UNKNOWN
     Route: 065
     Dates: end: 202003
  10. INSULIN [Concomitant]
     Active Substance: INSULIN NOS
     Dosage: UNK, UNKNOWN
     Route: 065
     Dates: end: 202003

REACTIONS (18)
  - Apathy [Recovering/Resolving]
  - Epilepsy [Recovering/Resolving]
  - Overweight [Recovering/Resolving]
  - Anger [Recovering/Resolving]
  - Neuropathy peripheral [Unknown]
  - Insomnia [Recovering/Resolving]
  - Vomiting [Unknown]
  - Dysgraphia [Recovering/Resolving]
  - Nosocomial infection [Unknown]
  - Bruxism [Recovering/Resolving]
  - Diarrhoea [Unknown]
  - Dry mouth [Unknown]
  - Confusional state [Unknown]
  - Listless [Unknown]
  - Type 2 diabetes mellitus [Recovering/Resolving]
  - Personality disorder [Unknown]
  - Parkinson^s disease [Recovering/Resolving]
  - Mental disorder [Recovering/Resolving]

NARRATIVE: CASE EVENT DATE: 2009
